FAERS Safety Report 9742758 (Version 1)
Quarter: 2013Q4

REPORT INFORMATION
  Report Type: Other
  Country: JP (occurrence: JP)
  Receive Date: 20131210
  Receipt Date: 20131210
  Transmission Date: 20140711
  Serious: Yes (Death, Hospitalization)
  Sender: FDA-Public Use
  Company Number: JP-NAPPMUNDI-GBR-2013-0016536

PATIENT
  Age: 79 Year
  Sex: Female

DRUGS (3)
  1. OXYCODONE HCL PR TABLET [Suspect]
     Indication: ABDOMINAL PAIN
     Dosage: 20 MG, DAILY
     Route: 065
  2. OXYCODONE HCL PR TABLET [Suspect]
     Indication: BACK PAIN
     Dosage: 10 MG, DAILY
     Route: 065
  3. NALOXONE [Suspect]

REACTIONS (2)
  - Altered state of consciousness [Recovering/Resolving]
  - Pneumonia [Fatal]
